FAERS Safety Report 23059433 (Version 1)
Quarter: 2023Q4

REPORT INFORMATION
  Report Type: Spontaneous
  Country: US (occurrence: None)
  Receive Date: 20231012
  Receipt Date: 20231012
  Transmission Date: 20240110
  Serious: No
  Sender: FDA-Public Use
  Company Number: None

PATIENT
  Age: 53 Year
  Sex: Female
  Weight: 67.5 kg

DRUGS (2)
  1. SUN BUM SIGNATURE SPF 30 SUNSCREEN LIP BALM [Suspect]
     Active Substance: ZINC OXIDE
     Indication: Lip disorder
     Dosage: OTHER FREQUENCY : AS NEEDED;?
     Route: 061
  2. FLONASE [Concomitant]
     Active Substance: FLUTICASONE PROPIONATE

REACTIONS (5)
  - Hypersensitivity [None]
  - Lip swelling [None]
  - Skin exfoliation [None]
  - Oral pain [None]
  - Mouth swelling [None]

NARRATIVE: CASE EVENT DATE: 20230918
